FAERS Safety Report 5774279-8 (Version None)
Quarter: 2008Q2

REPORT INFORMATION
  Report Type: 
  Country: None (occurrence: None)
  Receive Date: 20080616
  Receipt Date: 20080605
  Transmission Date: 20081010
  Serious: Yes (Hospitalization, Other)
  Sender: FDA-Public Use
  Company Number: US-JNJFOC-20080105770

PATIENT
  Sex: Female
  Weight: 105.24 kg

DRUGS (22)
  1. REMICADE [Suspect]
     Route: 042
  2. REMICADE [Suspect]
     Route: 042
  3. REMICADE [Suspect]
     Route: 042
  4. REMICADE [Suspect]
     Route: 042
  5. REMICADE [Suspect]
     Route: 042
  6. REMICADE [Suspect]
     Route: 042
  7. REMICADE [Suspect]
     Route: 042
  8. REMICADE [Suspect]
     Route: 042
  9. REMICADE [Suspect]
     Route: 042
  10. REMICADE [Suspect]
     Route: 042
  11. REMICADE [Suspect]
     Route: 042
  12. REMICADE [Suspect]
     Route: 042
  13. REMICADE [Suspect]
     Route: 042
  14. REMICADE [Suspect]
     Route: 042
  15. REMICADE [Suspect]
     Route: 042
  16. REMICADE [Suspect]
     Indication: PSORIATIC ARTHROPATHY
     Route: 042
  17. FOLIC ACID [Concomitant]
  18. FOSAMAX [Concomitant]
     Indication: OSTEOPOROSIS
  19. METHOTREXATE [Concomitant]
     Indication: RHEUMATOID ARTHRITIS
  20. VITAMIN D [Concomitant]
  21. CHANTIX [Concomitant]
  22. PREDNISONE TAB [Concomitant]
     Dosage: 5 TO 60  MG DAILY

REACTIONS (1)
  - RENAL CANCER [None]
